FAERS Safety Report 8826762 (Version 4)
Quarter: 2013Q4

REPORT INFORMATION
  Report Type: Spontaneous
  Country: JP (occurrence: JP)
  Receive Date: 20121005
  Receipt Date: 20131217
  Transmission Date: 20140711
  Serious: Yes (Death, Hospitalization)
  Sender: FDA-Public Use
  Company Number: JP-GLAXOSMITHKLINE-B0828852A

PATIENT
  Age: 32 Year
  Sex: Female
  Weight: 45 kg

DRUGS (21)
  1. REVOLADE [Suspect]
     Indication: IMMUNE THROMBOCYTOPENIC PURPURA
     Route: 048
     Dates: start: 20101213, end: 20110105
  2. REVOLADE [Suspect]
     Indication: IMMUNE THROMBOCYTOPENIC PURPURA
     Route: 048
     Dates: start: 20110106, end: 20110117
  3. REVOLADE [Suspect]
     Indication: IMMUNE THROMBOCYTOPENIC PURPURA
     Route: 048
     Dates: start: 20110118, end: 20110213
  4. REVOLADE [Suspect]
     Indication: IMMUNE THROMBOCYTOPENIC PURPURA
     Route: 048
     Dates: start: 20110214, end: 20110327
  5. REVOLADE [Suspect]
     Indication: IMMUNE THROMBOCYTOPENIC PURPURA
     Route: 048
     Dates: start: 20110328, end: 20110522
  6. REVOLADE [Suspect]
     Indication: IMMUNE THROMBOCYTOPENIC PURPURA
     Route: 048
     Dates: start: 20110523, end: 20110609
  7. REVOLADE [Suspect]
     Indication: IMMUNE THROMBOCYTOPENIC PURPURA
     Route: 048
     Dates: start: 20110610, end: 20110817
  8. REVOLADE [Suspect]
     Indication: IMMUNE THROMBOCYTOPENIC PURPURA
     Route: 048
     Dates: start: 20110818, end: 20120816
  9. PREDNISOLONE [Concomitant]
     Indication: IMMUNE THROMBOCYTOPENIC PURPURA
     Dosage: 10MG PER DAY
     Route: 048
     Dates: start: 200808
  10. PREDNISOLONE [Concomitant]
     Indication: IMMUNE THROMBOCYTOPENIC PURPURA
     Dosage: 30MG PER DAY
     Route: 048
  11. FERROMIA [Concomitant]
     Indication: ANAEMIA PROPHYLAXIS
     Dosage: 50MG PER DAY
     Route: 048
     Dates: start: 20120119
  12. PL [Concomitant]
     Route: 048
     Dates: start: 201208
  13. CRAVIT [Concomitant]
     Indication: URINARY TRACT INFECTION
     Dosage: 500MG PER DAY
     Route: 048
     Dates: start: 201208
  14. TAKEPRON [Concomitant]
     Indication: PROPHYLAXIS
     Route: 048
  15. TAKEPRON [Concomitant]
     Indication: PROPHYLAXIS
     Route: 048
  16. FOSAMAC [Concomitant]
     Indication: PROPHYLAXIS
     Route: 048
  17. BACTRAMIN [Concomitant]
     Indication: PROPHYLAXIS
     Route: 048
  18. DIAZEPAM [Concomitant]
     Route: 048
  19. DEPAKENE-R [Concomitant]
     Route: 048
  20. MUCOSTA [Concomitant]
     Indication: PROPHYLAXIS
     Route: 048
     Dates: end: 20120513
  21. PREDONINE [Concomitant]
     Indication: IMMUNE THROMBOCYTOPENIC PURPURA
     Route: 048

REACTIONS (9)
  - Lymphoma [Fatal]
  - Systemic inflammatory response syndrome [Unknown]
  - Pancytopenia [Unknown]
  - Hepatic function abnormal [Not Recovered/Not Resolved]
  - Pyrexia [Unknown]
  - Mobility decreased [Unknown]
  - Dermatitis [Unknown]
  - Lymphadenopathy [Unknown]
  - Splenomegaly [Unknown]
